FAERS Safety Report 6052073-0 (Version None)
Quarter: 2009Q1

REPORT INFORMATION
  Report Type: 
  Country: None (occurrence: None)
  Receive Date: 20090126
  Receipt Date: 20090119
  Transmission Date: 20090719
  Serious: Yes (Death, Hospitalization, Other)
  Sender: FDA-Public Use
  Company Number: US-ROXANE LABORATORIES, INC.-2009-RO-00080RO

PATIENT
  Age: 59 Year
  Sex: Female

DRUGS (3)
  1. METHOTREXATE [Suspect]
     Indication: ARTHRALGIA
     Route: 048
  2. PREDNISONE [Suspect]
     Indication: ARTHRALGIA
     Route: 048
  3. WARFARIN [Suspect]
     Indication: CARDIOLIPIN ANTIBODY
     Route: 048

REACTIONS (4)
  - DEATH [None]
  - DRUG ADMINISTRATION ERROR [None]
  - PROGRESSIVE MULTIFOCAL LEUKOENCEPHALOPATHY [None]
  - SYSTEMIC LUPUS ERYTHEMATOSUS [None]
